FAERS Safety Report 15726461 (Version 1)
Quarter: 2018Q4

REPORT INFORMATION
  Report Type: Spontaneous
  Country: US (occurrence: US)
  Receive Date: 20181217
  Receipt Date: 20181217
  Transmission Date: 20190205
  Serious: Yes (Other)
  Sender: FDA-Public Use
  Company Number: US-NOVOPROD-592016

PATIENT
  Age: 41 Year
  Sex: Male

DRUGS (4)
  1. LEVEMIR [Suspect]
     Active Substance: INSULIN DETEMIR
     Indication: TYPE 2 DIABETES MELLITUS
     Dosage: 30 U, QD AT BEDTIME
     Route: 058
     Dates: start: 20180105, end: 201803
  2. NOVOLOG [Concomitant]
     Active Substance: INSULIN ASPART
     Dosage: 25 U, UNK BEFORE MEALS
     Route: 058
     Dates: start: 201803
  3. LEVEMIR [Suspect]
     Active Substance: INSULIN DETEMIR
     Dosage: 40 U, QD AT BEDTIME
     Route: 058
     Dates: start: 201803
  4. NOVOLOG [Concomitant]
     Active Substance: INSULIN ASPART
     Indication: TYPE 2 DIABETES MELLITUS
     Dosage: 15 U, UNK BEFORE MEALS
     Route: 058
     Dates: start: 20171202, end: 201803

REACTIONS (1)
  - Blood glucose increased [Recovering/Resolving]

NARRATIVE: CASE EVENT DATE: 20180305
